FAERS Safety Report 7126907-2 (Version None)
Quarter: 2010Q4

REPORT INFORMATION
  Report Type: 
  Country: None (occurrence: None)
  Receive Date: 20101129
  Receipt Date: 20100112
  Transmission Date: 20110411
  Serious: No
  Sender: FDA-Public Use
  Company Number: US-PFIZER INC-2004031287

PATIENT
  Sex: Male
  Weight: 91.6 kg

DRUGS (4)
  1. VIAGRA [Suspect]
     Indication: PENIS DISORDER
     Dosage: UNK
     Route: 048
     Dates: start: 20040101, end: 20050101
  2. LASIX [Concomitant]
     Indication: MICTURITION DISORDER
     Dosage: UNK
     Route: 048
  3. TESTOSTERONE [Concomitant]
     Dosage: UNK
  4. SYNTHROID [Concomitant]
     Indication: THYROID DISORDER
     Dosage: 125 UG, 1X/DAY
     Route: 048

REACTIONS (7)
  - ARTHRITIS [None]
  - BLOOD TESTOSTERONE DECREASED [None]
  - BODY HEIGHT DECREASED [None]
  - DRUG INEFFECTIVE [None]
  - EXOSTOSIS [None]
  - FEELING HOT [None]
  - PROSTATOMEGALY [None]
